FAERS Safety Report 6448068-5 (Version None)
Quarter: 2009Q4

REPORT INFORMATION
  Report Type: 
  Country: None (occurrence: None)
  Receive Date: 20091120
  Receipt Date: 20091117
  Transmission Date: 20100525
  Serious: Yes (Hospitalization)
  Sender: FDA-Public Use
  Company Number: FR-ROCHE-669459

PATIENT
  Age: 61 Year
  Sex: Male

DRUGS (4)
  1. VALIUM [Suspect]
     Indication: AGITATION
     Route: 042
     Dates: start: 20090905, end: 20090910
  2. TOPALGIC [Suspect]
     Indication: PAIN
     Route: 042
     Dates: start: 20090913, end: 20090917
  3. IMOVANE [Concomitant]
  4. LASILIX [Concomitant]

REACTIONS (3)
  - CONFUSIONAL STATE [None]
  - DISORIENTATION [None]
  - SOMNOLENCE [None]
